FAERS Safety Report 23795252 (Version 1)
Quarter: 2024Q2

REPORT INFORMATION
  Report Type: Report from Study
  Country: GB (occurrence: GB)
  Receive Date: 20240429
  Receipt Date: 20240429
  Transmission Date: 20240716
  Serious: Yes (Death, Hospitalization, Disabling, Other)
  Sender: FDA-Public Use
  Company Number: GB-CELGENE-GBR-2016080058

PATIENT
  Age: 81 Year
  Sex: Male

DRUGS (3)
  1. DEXAMETHASONE [Suspect]
     Active Substance: DEXAMETHASONE
     Indication: Plasma cell myeloma
     Dosage: DURATION TEXT : CYCLE 4,
     Route: 065
     Dates: start: 20160702, end: 20160723
  2. DEXAMETHASONE [Suspect]
     Active Substance: DEXAMETHASONE
     Indication: Plasma cell myeloma
     Dosage: CYCLE 1,
     Route: 065
     Dates: start: 20160318, end: 20160408
  3. DEXAMETHASONE [Suspect]
     Active Substance: DEXAMETHASONE
     Indication: Plasma cell myeloma
     Dosage: FREQUENCY TEXT: NOT PROVIDED, CYCLE 3,
     Route: 065
     Dates: start: 20160513

REACTIONS (3)
  - Diabetic hyperosmolar coma [Fatal]
  - Neutropenia [Recovered/Resolved]
  - Hyperglycaemic hyperosmolar nonketotic syndrome [Fatal]

NARRATIVE: CASE EVENT DATE: 20160520
